FAERS Safety Report 4361108-2 (Version None)
Quarter: 2004Q2

REPORT INFORMATION
  Report Type: 
  Country: None (occurrence: None)
  Receive Date: 20040520
  Receipt Date: 20040427
  Transmission Date: 20050107
  Serious: Yes (Life-Threatening, Hospitalization)
  Sender: FDA-Public Use
  Company Number: JP-MERCK-0404USA02346

PATIENT
  Age: 62 Year
  Sex: Female
  Weight: 83 kg

DRUGS (5)
  1. PRIMAXIN [Suspect]
     Indication: PANCREATITIS
     Route: 041
     Dates: start: 20040413, end: 20040423
  2. PRIMAXIN [Suspect]
     Route: 042
     Dates: start: 20040402, end: 20040412
  3. PEPCID [Suspect]
     Indication: UPPER GASTROINTESTINAL HAEMORRHAGE
     Route: 041
     Dates: start: 20040402, end: 20040424
  4. NAFAMOSTAT MESYLATE [Concomitant]
     Indication: PANCREATITIS
     Route: 041
     Dates: start: 20040402, end: 20040412
  5. NAFAMOSTAT MESYLATE [Concomitant]
     Indication: DISSEMINATED INTRAVASCULAR COAGULATION
     Route: 041
     Dates: start: 20040413

REACTIONS (8)
  - AGRANULOCYTOSIS [None]
  - BACTERAEMIA [None]
  - C-REACTIVE PROTEIN INCREASED [None]
  - DISSEMINATED INTRAVASCULAR COAGULATION [None]
  - PYREXIA [None]
  - RENAL FAILURE [None]
  - RENAL FAILURE ACUTE [None]
  - RESPIRATORY FAILURE [None]
